FAERS Safety Report 14878751 (Version 1)
Quarter: 2018Q2

REPORT INFORMATION
  Report Type: Spontaneous
  Country: FR (occurrence: FR)
  Receive Date: 20180511
  Receipt Date: 20180511
  Transmission Date: 20180711
  Serious: Yes (Other)
  Sender: FDA-Public Use
  Company Number: FR-BRISTOL-MYERS SQUIBB COMPANY-BMS-2018-041446

PATIENT
  Age: 71 Year
  Sex: Female

DRUGS (5)
  1. ELIQUIS [Suspect]
     Active Substance: APIXABAN
     Indication: ATRIAL FIBRILLATION
     Dosage: 2 DF/DAY
     Route: 048
     Dates: start: 201707, end: 201712
  2. KEPPRA [Suspect]
     Active Substance: LEVETIRACETAM
     Indication: EPILEPSY
     Route: 048
  3. ATORVASTATINE                      /01326101/ [Suspect]
     Active Substance: ATORVASTATIN
     Indication: ATRIAL FIBRILLATION
     Route: 048
  4. KARDEGIC [Concomitant]
     Active Substance: ASPIRIN DL-LYSINE
     Indication: CAROTID ENDARTERECTOMY
     Dosage: 1 DF/DAY
     Route: 048
     Dates: start: 201707
  5. POLERY                             /00853301/ [Suspect]
     Active Substance: ACONITE TINCTURE\BELLADONNA LEAF\CODEINE\ETHYLMORPHINE\SODIUM BENZOATE\SODIUM BROMIDE
     Indication: COUGH
     Route: 048

REACTIONS (3)
  - Jaundice [Recovered/Resolved]
  - Hepatocellular injury [Recovered/Resolved]
  - Hepatitis [Recovered/Resolved]

NARRATIVE: CASE EVENT DATE: 20171201
